FAERS Safety Report 9882546 (Version 1)
Quarter: 2014Q1

REPORT INFORMATION
  Report Type: Spontaneous
  Country: JP (occurrence: JP)
  Receive Date: 20140207
  Receipt Date: 20140207
  Transmission Date: 20141002
  Serious: Yes (Hospitalization)
  Sender: FDA-Public Use
  Company Number: JP-MERCK-1402JPN003257

PATIENT
  Age: 64 Year
  Sex: Male

DRUGS (1)
  1. GLACTIV [Suspect]
     Indication: TYPE 2 DIABETES MELLITUS
     Dosage: UNK
     Route: 048
     Dates: start: 201202, end: 201203

REACTIONS (1)
  - Seronegative arthritis [Recovered/Resolved]
